FAERS Safety Report 18991864 (Version 1)
Quarter: 2021Q1

REPORT INFORMATION
  Report Type: Spontaneous
  Country: US (occurrence: US)
  Receive Date: 20210309
  Receipt Date: 20210309
  Transmission Date: 20210420
  Serious: Yes (Other)
  Sender: FDA-Public Use
  Company Number: None

PATIENT
  Age: 69 Year
  Sex: Male
  Weight: 106.59 kg

DRUGS (2)
  1. VERZENIO [Concomitant]
     Active Substance: ABEMACICLIB
     Dates: start: 20210123, end: 20210304
  2. VERZENIO [Suspect]
     Active Substance: ABEMACICLIB
     Indication: BREAST CANCER
     Dosage: 60 AN
     Route: 048
     Dates: start: 20210123, end: 20210304

REACTIONS (2)
  - Blood alkaline phosphatase increased [None]
  - Blood bilirubin increased [None]

NARRATIVE: CASE EVENT DATE: 20210304
